FAERS Safety Report 11936149 (Version 2)
Quarter: 2016Q3

REPORT INFORMATION
  Report Type: Report from Study
  Country: US (occurrence: US)
  Receive Date: 20160121
  Receipt Date: 20160825
  Transmission Date: 20161109
  Serious: Yes (Other)
  Sender: FDA-Public Use
  Company Number: US-AMGEN-USASL2015139598

PATIENT
  Age: 56 Year
  Sex: Female

DRUGS (3)
  1. KYPROLIS [Suspect]
     Active Substance: CARFILZOMIB
     Indication: PLASMA CELL MYELOMA
     Dosage: 29 MG, 2 TIMES/WK
     Route: 065
     Dates: start: 201410
  2. REVLIMID [Concomitant]
     Active Substance: LENALIDOMIDE
     Dosage: UNK
  3. DEXAMETHASONE. [Concomitant]
     Active Substance: DEXAMETHASONE
     Dosage: UNK

REACTIONS (10)
  - Bone disorder [Unknown]
  - Bone swelling [Unknown]
  - Skin lesion [Recovering/Resolving]
  - Skin disorder [Recovering/Resolving]
  - Jaw disorder [Unknown]
  - Jaw fracture [Unknown]
  - Pain [Not Recovered/Not Resolved]
  - Clostridium difficile infection [Not Recovered/Not Resolved]
  - Skin haemorrhage [Recovering/Resolving]
  - Pain in jaw [Unknown]
